FAERS Safety Report 25504973 (Version 1)
Quarter: 2025Q3

REPORT INFORMATION
  Report Type: Spontaneous
  Country: US (occurrence: US)
  Receive Date: 20250702
  Receipt Date: 20250702
  Transmission Date: 20251020
  Serious: No
  Sender: SAREPTA THERAPEUTICS
  Company Number: US-SAREPTA THERAPEUTICS INC.-SRP2025-006113

PATIENT
  Age: 23 Year
  Sex: Male
  Weight: 65.53 kg

DRUGS (2)
  1. EXONDYS 51 [Suspect]
     Active Substance: ETEPLIRSEN
     Indication: Product used for unknown indication
     Route: 042
     Dates: start: 201604
  2. PREDNISONE [Concomitant]
     Active Substance: PREDNISONE
     Indication: Cardiovascular event prophylaxis
     Dosage: 10 MILLIGRAM, DAILY TAPERING
     Dates: start: 202412, end: 202501

REACTIONS (3)
  - Weight decreased [Unknown]
  - Decreased appetite [Unknown]
  - Mastication disorder [Unknown]

NARRATIVE: CASE EVENT DATE: 20241203
